FAERS Safety Report 11193023 (Version 4)
Quarter: 2015Q3

REPORT INFORMATION
  Report Type: Report from Study
  Country: CZ (occurrence: CZ)
  Receive Date: 20150616
  Receipt Date: 20150724
  Transmission Date: 20151125
  Serious: Yes (Disabling)
  Sender: FDA-Public Use
  Company Number: CZ-PFIZER INC-MER2015175569

PATIENT
  Age: 67 Year
  Sex: Female
  Weight: 62 kg

DRUGS (11)
  1. PRESTARIUM /00790701/ [Concomitant]
     Indication: HYPERTENSION
     Dosage: 5 MG, 1X/DAY
     Route: 048
     Dates: start: 20140612
  2. LOKREN [Concomitant]
     Active Substance: BETAXOLOL HYDROCHLORIDE
     Indication: HYPERTENSION
     Dosage: 20 MG, 1X/DAY
     Route: 048
     Dates: start: 200404
  3. ESSENTIALE FORTE [Concomitant]
     Indication: GAMMA-GLUTAMYLTRANSFERASE INCREASED
     Dosage: 300 MG, DAILY
     Dates: start: 20141124
  4. DOCETAXEL. [Suspect]
     Active Substance: DOCETAXEL
     Indication: BREAST CANCER METASTATIC
     Dosage: UNK
     Dates: start: 20120327, end: 20130702
  5. FUROSEMID /00032601/ [Concomitant]
     Active Substance: FUROSEMIDE
     Indication: OEDEMA PERIPHERAL
     Dosage: 20 MG, 1X/DAY
     Route: 048
     Dates: start: 20140915, end: 20150204
  6. FUROSEMID /00032601/ [Concomitant]
     Active Substance: FUROSEMIDE
     Indication: PERIPHERAL SWELLING
  7. OXYCONTIN [Suspect]
     Active Substance: OXYCODONE HYDROCHLORIDE
     Dosage: UNK
     Dates: start: 20140304, end: 20141223
  8. VESSEL DUE F [Concomitant]
     Active Substance: SULODEXIDE
     Indication: THROMBOSIS
     Dosage: 2 DF, 1X/DAY
     Route: 048
     Dates: start: 20140707
  9. NEUROL [Suspect]
     Active Substance: ALPRAZOLAM
     Dosage: UNK
     Dates: start: 200804, end: 20141124
  10. MSB0010718C [Suspect]
     Active Substance: AVELUMAB
     Indication: BREAST CANCER METASTATIC
     Dosage: 10 MG/KG (690 MG), CYCLIC (ONCE IN 2 WEEKS)
     Route: 042
     Dates: start: 20140331, end: 20141110
  11. ESSENTIALE FORTE [Concomitant]
     Indication: PROPHYLAXIS

REACTIONS (1)
  - Gamma-glutamyltransferase increased [Not Recovered/Not Resolved]

NARRATIVE: CASE EVENT DATE: 20141208
